FAERS Safety Report 10079534 (Version 1)
Quarter: 2014Q2

REPORT INFORMATION
  Report Type: Spontaneous
  Country: GB (occurrence: GB)
  Receive Date: 20140415
  Receipt Date: 20140415
  Transmission Date: 20141212
  Serious: Yes (Other)
  Sender: FDA-Public Use
  Company Number: GB-WATSON-2014-07130

PATIENT
  Age: 74 Year
  Sex: Female
  Weight: 62 kg

DRUGS (3)
  1. CO-AMOXICLAV [Suspect]
     Indication: PRODUCT USED FOR UNKNOWN INDICATION
     Dosage: FIRST DOSE AT BEDTIME; 500/125MG
     Route: 048
     Dates: start: 20140308, end: 20140308
  2. SIMVASTATIN [Interacting]
     Indication: PRODUCT USED FOR UNKNOWN INDICATION
     Dosage: 40 MG, UNKNOWN
     Route: 048
     Dates: start: 2013, end: 20140308
  3. ENALAPRIL [Concomitant]
     Indication: PRODUCT USED FOR UNKNOWN INDICATION
     Dosage: UNK
     Route: 065

REACTIONS (2)
  - Hallucination, visual [Recovered/Resolved]
  - Drug interaction [Unknown]
